FAERS Safety Report 4412083-3 (Version None)
Quarter: 2004Q3

REPORT INFORMATION
  Report Type: 
  Country: None (occurrence: None)
  Receive Date: 20040730
  Receipt Date: 20040721
  Transmission Date: 20050211
  Serious: Yes (Other)
  Sender: FDA-Public Use
  Company Number: US-GLAXOSMITHKLINE-A0519224A

PATIENT
  Age: 71 Year
  Sex: Female

DRUGS (5)
  1. PAXIL [Suspect]
     Indication: DEPRESSION
     Route: 048
  2. PAXIL CR [Suspect]
     Indication: DEPRESSION
     Dosage: 12.5MG PER DAY
     Route: 048
  3. NEXIUM [Concomitant]
  4. THYROID MEDICATION [Concomitant]
  5. ATIVAN [Concomitant]

REACTIONS (2)
  - SUICIDAL IDEATION [None]
  - WEIGHT INCREASED [None]
